FAERS Safety Report 20484057 (Version 1)
Quarter: 2022Q1

REPORT INFORMATION
  Report Type: Spontaneous
  Country: US (occurrence: None)
  Receive Date: 20220216
  Receipt Date: 20220216
  Transmission Date: 20220424
  Serious: Yes (Disabling)
  Sender: FDA-Public Use
  Company Number: None

PATIENT
  Age: 42 Year
  Sex: Male
  Weight: 132.75 kg

DRUGS (12)
  1. UBRELVY [Suspect]
     Active Substance: UBROGEPANT
     Indication: Migraine
     Dosage: OTHER QUANTITY : 1 TABLET(S);?FREQUENCY : AS NEEDED;?
     Route: 048
     Dates: start: 20220214, end: 20220214
  2. METFORMIN [Concomitant]
     Active Substance: METFORMIN HYDROCHLORIDE
  3. INSULIN NOS [Concomitant]
     Active Substance: INSULIN NOS
  4. LISINOPRIL [Concomitant]
     Active Substance: LISINOPRIL
  5. METOPROLOL [Concomitant]
     Active Substance: METOPROLOL
  6. ATORVASTATIN [Concomitant]
     Active Substance: ATORVASTATIN
  7. AMLODIPINE [Concomitant]
     Active Substance: AMLODIPINE BESYLATE
  8. PANTOPRAZOLE [Concomitant]
     Active Substance: PANTOPRAZOLE
  9. TOPIRAMATE [Concomitant]
     Active Substance: TOPIRAMATE
  10. ISOSORBIDE [Concomitant]
     Active Substance: ISOSORBIDE
  11. ELIQUIS [Concomitant]
     Active Substance: APIXABAN
  12. ASPIRIN [Concomitant]
     Active Substance: ASPIRIN

REACTIONS (7)
  - Diarrhoea [None]
  - Nausea [None]
  - Decreased appetite [None]
  - Dizziness [None]
  - Pruritus [None]
  - Formication [None]
  - Lethargy [None]

NARRATIVE: CASE EVENT DATE: 20220214
